FAERS Safety Report 21351193 (Version 1)
Quarter: 2022Q3

REPORT INFORMATION
  Report Type: Spontaneous
  Country: DE (occurrence: DE)
  Receive Date: 20220919
  Receipt Date: 20220919
  Transmission Date: 20221026
  Serious: Yes (Other)
  Sender: FDA-Public Use
  Company Number: DE-JNJFOC-20220818521

PATIENT

DRUGS (22)
  1. CISPLATIN [Suspect]
     Active Substance: CISPLATIN
     Indication: Plasma cell myeloma refractory
     Dosage: SEVENTH LINE TREATMENT
     Route: 065
  2. DEXAMETHASONE [Suspect]
     Active Substance: DEXAMETHASONE
     Indication: Plasma cell myeloma refractory
     Dosage: FIRST LINE TREATMENT
     Route: 065
     Dates: start: 20140610, end: 20150122
  3. DEXAMETHASONE [Suspect]
     Active Substance: DEXAMETHASONE
     Dosage: SECOND LINE TREATMENT
     Route: 065
     Dates: start: 20171215, end: 20180503
  4. DEXAMETHASONE [Suspect]
     Active Substance: DEXAMETHASONE
     Dosage: THIRD LINE TREATMENT
     Route: 065
     Dates: start: 20200202, end: 20210506
  5. DEXAMETHASONE [Suspect]
     Active Substance: DEXAMETHASONE
     Dosage: FOURTH LINE TREATMENT
     Route: 065
     Dates: start: 20210603, end: 20210624
  6. DEXAMETHASONE [Suspect]
     Active Substance: DEXAMETHASONE
     Dosage: FIFTH LINE TREATMENT
     Route: 065
     Dates: start: 20210627, end: 20211110
  7. DEXAMETHASONE [Suspect]
     Active Substance: DEXAMETHASONE
     Dosage: MOST RECENT LINE TREATMENT
     Route: 065
     Dates: start: 20220610, end: 20220715
  8. DOXORUBICIN [Suspect]
     Active Substance: DOXORUBICIN
     Indication: Plasma cell myeloma refractory
     Dosage: SEVENTH LINE
     Route: 065
  9. FLUDARABINE [Suspect]
     Active Substance: FLUDARABINE PHOSPHATE
     Indication: Plasma cell myeloma refractory
     Dosage: SIXTH LINE TREATMENT
     Route: 065
  10. GENETICALLY-MODIFIED AUTOLOGOUS T CELLS NOS [Suspect]
     Active Substance: GENETICALLY-MODIFIED AUTOLOGOUS T CELLS NOS
     Indication: Plasma cell myeloma refractory
     Dosage: SIXTH LINE TREATMENT, BCMA-TARGETED
     Route: 065
     Dates: start: 20220121, end: 20220126
  11. POMALIDOMIDE [Suspect]
     Active Substance: POMALIDOMIDE
     Indication: Plasma cell myeloma refractory
     Dosage: FOURTH LINE TREATMENT
     Route: 065
     Dates: start: 20210603, end: 20210624
  12. POMALIDOMIDE [Suspect]
     Active Substance: POMALIDOMIDE
     Dosage: FIFTH LINE TREATMENT
     Route: 065
     Dates: start: 20210627, end: 20211110
  13. DARZALEX [Suspect]
     Active Substance: DARATUMUMAB
     Indication: Plasma cell myeloma refractory
     Dosage: THIRD LINE TREATMENT
     Route: 065
     Dates: start: 20200202, end: 20210506
  14. DARZALEX [Suspect]
     Active Substance: DARATUMUMAB
     Dosage: MOST RECENT LINE TREATMENT
     Route: 065
     Dates: start: 20220610, end: 20220715
  15. CYCLOPHOSPHAMIDE [Suspect]
     Active Substance: CYCLOPHOSPHAMIDE
     Indication: Plasma cell myeloma refractory
     Dosage: FOURTH LINE TREATMENT
     Route: 065
     Dates: start: 20210603, end: 20210624
  16. CYCLOPHOSPHAMIDE [Suspect]
     Active Substance: CYCLOPHOSPHAMIDE
     Dosage: SIXTH LINE TREATMENT
     Route: 065
     Dates: start: 20220121, end: 20220126
  17. CYCLOPHOSPHAMIDE [Suspect]
     Active Substance: CYCLOPHOSPHAMIDE
     Dosage: MOST RECENT LINE TREATMENT
     Route: 065
     Dates: start: 20220610, end: 20220715
  18. ETOPOSIDE [Suspect]
     Active Substance: ETOPOSIDE
     Indication: Plasma cell myeloma refractory
     Dosage: SEVENTH LINE TREATMENT
     Route: 065
  19. VELCADE [Suspect]
     Active Substance: BORTEZOMIB
     Indication: Plasma cell myeloma refractory
     Dosage: FIRST LINE TREATMENT
     Route: 065
     Dates: start: 20140610, end: 20150122
  20. VELCADE [Suspect]
     Active Substance: BORTEZOMIB
     Dosage: MOST RECENT LINE TREATMENT
     Route: 065
     Dates: start: 20220610, end: 20220715
  21. THALIDOMIDE [Suspect]
     Active Substance: THALIDOMIDE
     Indication: Plasma cell myeloma refractory
     Dosage: MOST RECENT LINE TREATMENT
     Route: 065
     Dates: start: 20220610, end: 20220715
  22. ELOTUZUMAB [Suspect]
     Active Substance: ELOTUZUMAB
     Indication: Plasma cell myeloma refractory
     Dosage: FIFTH LINE TREATMENT;
     Route: 065
     Dates: start: 20210627, end: 20211110

REACTIONS (1)
  - Disease progression [Unknown]
